FAERS Safety Report 8413457-6 (Version None)
Quarter: 2012Q2

REPORT INFORMATION
  Report Type: 
  Country: None (occurrence: None)
  Receive Date: 20120605
  Receipt Date: 20120604
  Transmission Date: 20120825
  Serious: Yes (Other)
  Sender: FDA-Public Use
  Company Number: US-BAYER-2012-055050

PATIENT
  Age: 26 Year
  Sex: Female

DRUGS (1)
  1. MIRENA [Suspect]
     Indication: CONTRACEPTION
     Dosage: UNK
     Route: 015
     Dates: start: 20100301, end: 20120531

REACTIONS (6)
  - VAGINAL HAEMORRHAGE [None]
  - NAUSEA [None]
  - ABDOMINAL PAIN UPPER [None]
  - PANIC ATTACK [None]
  - UTERINE SPASM [None]
  - FATIGUE [None]
